FAERS Safety Report 7545800-4 (Version None)
Quarter: 2011Q2

REPORT INFORMATION
  Report Type: 
  Country: None (occurrence: None)
  Receive Date: 20110614
  Receipt Date: 20110530
  Transmission Date: 20111010
  Serious: Yes (Congenital Anomaly)
  Sender: FDA-Public Use
  Company Number: US-SANOFI-AVENTIS-2011SA036600

PATIENT
  Sex: Male
  Weight: 2.9 kg

DRUGS (4)
  1. LAMOTRIGINE [Suspect]
     Dosage: UNTIL 22 WEEKS OF PREGNANCY
     Route: 064
  2. LAMOTRIGINE [Suspect]
     Dosage: DURING PRE CONCEPTION
     Route: 064
  3. LAMOTRIGINE [Suspect]
     Route: 064
  4. ZOLPIDEM TARTRATE [Suspect]
     Dosage: THIRD TRIMESTER
     Route: 064

REACTIONS (2)
  - PILONIDAL CYST CONGENITAL [None]
  - DRUG EXPOSURE DURING PREGNANCY [None]
